FAERS Safety Report 13460237 (Version 1)
Quarter: 2017Q2

REPORT INFORMATION
  Report Type: Spontaneous
  Country: US (occurrence: US)
  Receive Date: 20170420
  Receipt Date: 20170420
  Transmission Date: 20170830
  Serious: No
  Sender: FDA-Public Use
  Company Number: US-TEVA-729011USA

PATIENT

DRUGS (1)
  1. THEOPHYLLINE [Suspect]
     Active Substance: THEOPHYLLINE ANHYDROUS
     Indication: ASTHMA
     Route: 065

REACTIONS (2)
  - Asthma [Unknown]
  - Treatment noncompliance [Unknown]
